FAERS Safety Report 9506612 (Version 2)
Quarter: 2013Q3

REPORT INFORMATION
  Report Type: Spontaneous
  Country: CO (occurrence: CO)
  Receive Date: 20130907
  Receipt Date: 20130916
  Transmission Date: 20140515
  Serious: Yes (Hospitalization)
  Sender: FDA-Public Use
  Company Number: CO-MERCK-1309COL000163

PATIENT
  Age: 62 Year
  Sex: Male
  Weight: 76 kg

DRUGS (5)
  1. PEG-INTRON [Suspect]
     Indication: HEPATITIS C
     Dosage: 120 MICROGRAM, QW; FORMULATION: PREFILLED PEN (REDIPEN)
     Route: 058
     Dates: start: 20130311, end: 201308
  2. PEG-INTRON [Suspect]
     Dosage: 100 MICROGRAM, QW
     Route: 048
     Dates: start: 201308
  3. REBETOL [Suspect]
     Indication: HEPATITIS C
     Dosage: 1200MG DAILY
     Route: 048
     Dates: start: 20130311, end: 201308
  4. REBETOL [Suspect]
     Dosage: 800 MG DAILY
     Route: 048
     Dates: start: 201308
  5. VICTRELIS [Suspect]
     Indication: HEPATITIS C
     Dosage: 2400MG DAILY
     Route: 048
     Dates: start: 20130408

REACTIONS (6)
  - Cough [Unknown]
  - Pyrexia [Unknown]
  - Chills [Unknown]
  - Thrombocytopenia [Unknown]
  - Varices oesophageal [Unknown]
  - Anaemia [Recovering/Resolving]
